FAERS Safety Report 16184815 (Version 1)
Quarter: 2019Q2

REPORT INFORMATION
  Report Type: Spontaneous
  Country: US (occurrence: US)
  Receive Date: 20190308
  Receipt Date: 20190308
  Transmission Date: 20190711
  Serious: No
  Sender: FDA-Public Use
  Company Number: None

PATIENT

DRUGS (1)
  1. KROGER ACETAMINOPHEN EXTRA STRENGTH [Suspect]
     Active Substance: ACETAMINOPHEN
     Indication: ORAL PAIN
     Dosage: ?          QUANTITY:I IN CASE?3 NOT SEND;?

REACTIONS (1)
  - Product use complaint [None]

NARRATIVE: CASE EVENT DATE: 20190304
